FAERS Safety Report 10147293 (Version 1)
Quarter: 2014Q2

REPORT INFORMATION
  Report Type: Spontaneous
  Country: US (occurrence: US)
  Receive Date: 20140501
  Receipt Date: 20140501
  Transmission Date: 20141212
  Serious: No
  Sender: FDA-Public Use
  Company Number: US-SA-2014SA008807

PATIENT
  Age: 40 Year
  Sex: Male

DRUGS (5)
  1. HECTOROL [Suspect]
     Indication: PRODUCT USED FOR UNKNOWN INDICATION
     Route: 042
     Dates: start: 20131229, end: 20131229
  2. HECTOROL [Suspect]
     Indication: PRODUCT USED FOR UNKNOWN INDICATION
     Route: 042
     Dates: start: 20131231
  3. CLONIDINE [Concomitant]
     Indication: HYPERTENSION
     Dates: start: 201312
  4. LISINOPRIL [Concomitant]
  5. ZEMPLAR [Concomitant]

REACTIONS (8)
  - Hypersensitivity [Recovered/Resolved]
  - Chest pain [Recovered/Resolved]
  - Back pain [Recovered/Resolved]
  - Palpitations [Recovered/Resolved]
  - Hypersensitivity [Unknown]
  - Chest pain [Unknown]
  - Back pain [Unknown]
  - Palpitations [Unknown]
